FAERS Safety Report 7736804-7 (Version None)
Quarter: 2011Q3

REPORT INFORMATION
  Report Type: 
  Country: None (occurrence: None)
  Receive Date: 20110908
  Receipt Date: 20110908
  Transmission Date: 20111222
  Serious: Yes (Other)
  Sender: FDA-Public Use
  Company Number: None

PATIENT
  Age: 8 Year
  Sex: Male
  Weight: 27.669 kg

DRUGS (1)
  1. FLUOXETINE [Suspect]
     Indication: ANXIETY
     Dosage: 10MG
     Route: 048
     Dates: start: 20110714, end: 20110812

REACTIONS (3)
  - URTICARIA [None]
  - PYREXIA [None]
  - ARTHRALGIA [None]
